FAERS Safety Report 8274268-8 (Version None)
Quarter: 2012Q2

REPORT INFORMATION
  Report Type: 
  Country: None (occurrence: None)
  Receive Date: 20120411
  Receipt Date: 20120411
  Transmission Date: 20120825
  Serious: No
  Sender: FDA-Public Use
  Company Number: None

PATIENT
  Age: 66 Year
  Sex: Male

DRUGS (1)
  1. VENLAFAXINE [Suspect]
     Dosage: 75MG
     Route: 048
     Dates: start: 20110614, end: 20120410

REACTIONS (3)
  - MEDICATION ERROR [None]
  - INCORRECT DRUG DOSAGE FORM ADMINISTERED [None]
  - DRUG DISPENSING ERROR [None]
